FAERS Safety Report 15786816 (Version 1)
Quarter: 2018Q4

REPORT INFORMATION
  Report Type: Spontaneous
  Country: US (occurrence: US)
  Receive Date: 20181212
  Receipt Date: 20181212
  Transmission Date: 20190205
  Serious: No
  Sender: FDA-Public Use
  Company Number: None

PATIENT
  Age: 77 Year
  Sex: Male

DRUGS (1)
  1. BICTEGRAVIR/EMTRICITABINE/TENOFOVIR [Suspect]
     Active Substance: BICTEGRAVIR SODIUM\EMTRICITABINE\TENOFOVIR ALAFENAMIDE FUMARATE
     Route: 048
     Dates: start: 20181126, end: 20181202

REACTIONS (3)
  - Dizziness [None]
  - Confusional state [None]
  - Headache [None]

NARRATIVE: CASE EVENT DATE: 20181126
